FAERS Safety Report 10029651 (Version 1)
Quarter: 2014Q1

REPORT INFORMATION
  Report Type: Spontaneous
  Country: US (occurrence: None)
  Receive Date: 20140321
  Receipt Date: 20140321
  Transmission Date: 20141002
  Serious: Yes (Disabling)
  Sender: FDA-Public Use
  Company Number: None

PATIENT
  Age: 26 Year
  Sex: Female
  Weight: 54.43 kg

DRUGS (1)
  1. SUBOXONE FILM [Suspect]
     Indication: ANXIETY
     Dosage: 2 FILMS ONCE DAILY TAKEN UNDER THE TONGUE
     Dates: start: 20140314, end: 20140320

REACTIONS (3)
  - Anger [None]
  - Screaming [None]
  - Aggression [None]
